FAERS Safety Report 5794795-2 (Version None)
Quarter: 2008Q2

REPORT INFORMATION
  Report Type: 
  Country: None (occurrence: None)
  Receive Date: 20080630
  Receipt Date: 20080623
  Transmission Date: 20081010
  Serious: Yes (Hospitalization)
  Sender: FDA-Public Use
  Company Number: A0689414A

PATIENT
  Age: 78 Year
  Sex: Female
  Weight: 58.9 kg

DRUGS (5)
  1. LAPATINIB [Suspect]
     Indication: COLORECTAL CANCER
     Dosage: 1000MG PER DAY
     Route: 048
     Dates: start: 20071008
  2. OXALIPLATIN [Suspect]
     Indication: COLORECTAL CANCER
     Dosage: 130MGM2 SINGLE DOSE
     Route: 042
     Dates: start: 20071008, end: 20071008
  3. CAPECITABINE [Suspect]
     Indication: COLORECTAL CANCER
     Dosage: 1500MGM2 CYCLIC
     Route: 048
     Dates: start: 20071008
  4. POTASSIUM CHLORIDE [Concomitant]
     Indication: SUPPLEMENTATION THERAPY
     Dosage: 40MEQ PER DAY
     Route: 048
     Dates: start: 20070801
  5. HYDROCHLOROTHIAZIDE [Concomitant]
     Indication: HYPERTENSION
     Dosage: 25MG PER DAY
     Route: 048
     Dates: start: 19921001

REACTIONS (6)
  - ANOREXIA [None]
  - BLOOD BILIRUBIN INCREASED [None]
  - DEHYDRATION [None]
  - HYPOKALAEMIA [None]
  - NAUSEA [None]
  - VOMITING [None]
